FAERS Safety Report 15405459 (Version 1)
Quarter: 2018Q3

REPORT INFORMATION
  Report Type: Other
  Country: US (occurrence: US)
  Receive Date: 20180920
  Receipt Date: 20180920
  Transmission Date: 20181010
  Serious: Yes (Death, Other)
  Sender: FDA-Public Use
  Company Number: US-ACTELION-A-CH2018-178893

PATIENT
  Age: 42 Year
  Sex: Female

DRUGS (1)
  1. EPOPROSTENOL SODIUM. [Suspect]
     Active Substance: EPOPROSTENOL SODIUM
     Indication: PULMONARY ARTERIAL HYPERTENSION
     Route: 042

REACTIONS (9)
  - Haemorrhage [Unknown]
  - Coagulopathy [Unknown]
  - Transfusion [Unknown]
  - Blood lactic acid increased [Unknown]
  - Septic shock [Fatal]
  - Right ventricular failure [Unknown]
  - Pneumonia [Unknown]
  - White blood cell count increased [Unknown]
  - Ventricular assist device insertion [Unknown]
